FAERS Safety Report 7027023-0 (Version None)
Quarter: 2010Q4

REPORT INFORMATION
  Report Type: 
  Country: None (occurrence: None)
  Receive Date: 20101004
  Receipt Date: 20100923
  Transmission Date: 20110411
  Serious: Yes (Hospitalization)
  Sender: FDA-Public Use
  Company Number: US-JNJFOC-20100907524

PATIENT
  Sex: Female
  Weight: 27.2 kg

DRUGS (4)
  1. INFLIXIMAB, RECOMBINANT [Suspect]
     Indication: INFLAMMATION
     Route: 042
  2. INFLIXIMAB, RECOMBINANT [Suspect]
     Route: 042
  3. METRONIDAZOLE [Concomitant]
  4. BACTRIM [Concomitant]

REACTIONS (5)
  - ADENOIDECTOMY [None]
  - CROHN'S DISEASE [None]
  - OROPHARYNGEAL PAIN [None]
  - SHIGELLA INFECTION [None]
  - TONSILLECTOMY [None]
